FAERS Safety Report 18981588 (Version 3)
Quarter: 2023Q1

REPORT INFORMATION
  Report Type: Other
  Country: KR (occurrence: None)
  Receive Date: 20210308
  Receipt Date: 20230215
  Transmission Date: 20230418
  Serious: Yes (Other)
  Sender: FDA-Public Use
  Company Number: KR-ROCHE-2783942

PATIENT
  Age: 7 Year
  Sex: Male

DRUGS (18)
  1. RITUXIMAB [Suspect]
     Active Substance: RITUXIMAB
     Indication: Mesangioproliferative glomerulonephritis
     Dosage: 2 DOSES IN 8 WEEKS
     Route: 065
  2. MYCOPHENOLATE MOFETIL [Suspect]
     Active Substance: MYCOPHENOLATE MOFETIL
     Indication: Prophylaxis against transplant rejection
     Route: 065
  3. BACTRIM [Suspect]
     Active Substance: SULFAMETHOXAZOLE\TRIMETHOPRIM
     Indication: Prophylaxis
     Route: 065
  4. CYCLOSPORINE [Suspect]
     Active Substance: CYCLOSPORINE
     Indication: Nephrotic syndrome
     Dosage: 3 - 5 MG/KG/DAY, MEDIAN TROUGH LEVEL 32.4 NG/ML
     Route: 065
  5. METHYLPREDNISOLONE [Suspect]
     Active Substance: METHYLPREDNISOLONE
     Indication: Prophylaxis against transplant rejection
     Route: 065
  6. PREDNISOLONE [Suspect]
     Active Substance: PREDNISOLONE
     Indication: Prophylaxis against transplant rejection
     Route: 065
  7. TACROLIMUS [Suspect]
     Active Substance: TACROLIMUS
     Indication: Prophylaxis against transplant rejection
     Dosage: 0.15-0.675 MG/KG/DAY WITH TARGET TROUGH LEVEL OF 8 -10 NG/ML
     Route: 065
  8. GANCICLOVIR [Concomitant]
     Active Substance: GANCICLOVIR
     Dosage: FROM DAY 1 TO DAY 18 AFTER KT
  9. VALGANCICLOVIR [Concomitant]
     Active Substance: VALGANCICLOVIR
     Dosage: FROM DAY 19 TO DAY 57 AFTER KT
  10. AMLODIPINE [Concomitant]
     Active Substance: AMLODIPINE BESYLATE
  11. MINOXIDIL [Concomitant]
     Active Substance: MINOXIDIL
  12. CARVEDILOL [Concomitant]
     Active Substance: CARVEDILOL
  13. IRON POLYMALTOSE [Concomitant]
     Active Substance: IRON POLYMALTOSE
  14. CALCIUM POLYSTYRENE SULFONATE [Concomitant]
     Active Substance: CALCIUM POLYSTYRENE SULFONATE
  15. SODIUM BICARBONATE [Concomitant]
     Active Substance: SODIUM BICARBONATE
  16. VALPROATE SODIUM [Concomitant]
     Active Substance: VALPROATE SODIUM
  17. LEVOTHYROXINE [Concomitant]
     Active Substance: LEVOTHYROXINE
     Indication: Hypothyroidism
  18. AZATHIOPRINE [Concomitant]
     Active Substance: AZATHIOPRINE

REACTIONS (3)
  - Ascites [Recovered/Resolved]
  - Bicytopenia [Unknown]
  - Diarrhoea [Unknown]
